FAERS Safety Report 19984725 (Version 2)
Quarter: 2021Q4

REPORT INFORMATION
  Report Type: Spontaneous
  Country: DE (occurrence: DE)
  Receive Date: 20211022
  Receipt Date: 20211029
  Transmission Date: 20220303
  Serious: Yes (Other)
  Sender: FDA-Public Use
  Company Number: None

PATIENT
  Age: 34 Year
  Sex: Female
  Weight: 56 kg

DRUGS (1)
  1. LEVOFLOXACIN [Suspect]
     Active Substance: LEVOFLOXACIN
     Indication: Vaginal infection
     Dosage: 2X250MG FOR 2 DAYS, THEN 2X375MG FOR 2 DAYS
     Route: 048
     Dates: start: 20200722, end: 20200723

REACTIONS (22)
  - Panic attack [Recovering/Resolving]
  - Arthralgia [Recovering/Resolving]
  - Anxiety [Recovering/Resolving]
  - Tendon pain [Not Recovered/Not Resolved]
  - Tendon discomfort [Not Recovered/Not Resolved]
  - Myalgia [Not Recovered/Not Resolved]
  - Neuropathy peripheral [Recovering/Resolving]
  - Restlessness [Recovering/Resolving]
  - Loss of personal independence in daily activities [Unknown]
  - Tendon disorder [Not Recovered/Not Resolved]
  - Mental disorder [Recovering/Resolving]
  - Muscular weakness [Recovering/Resolving]
  - Mobility decreased [Not Recovered/Not Resolved]
  - Dyspnoea [Recovering/Resolving]
  - Autoimmune disorder [Recovering/Resolving]
  - Impaired work ability [Unknown]
  - Visual impairment [Recovered/Resolved]
  - Wheelchair user [Not Recovered/Not Resolved]
  - Chronic fatigue syndrome [Not Recovered/Not Resolved]
  - Insomnia [Recovering/Resolving]
  - Medication error [Unknown]
  - Disability [Unknown]

NARRATIVE: CASE EVENT DATE: 20200101
